FAERS Safety Report 18683782 (Version 1)
Quarter: 2020Q4

REPORT INFORMATION
  Report Type: Spontaneous
  Country: US (occurrence: US)
  Receive Date: 20201230
  Receipt Date: 20201230
  Transmission Date: 20210114
  Serious: Yes (Other)
  Sender: FDA-Public Use
  Company Number: US-BAYER-2020-285782

PATIENT
  Age: 32 Year
  Sex: Female

DRUGS (4)
  1. IBUPROFEN. [Concomitant]
     Active Substance: IBUPROFEN
     Indication: PLACENTAL INSUFFICIENCY
  2. BETAMETHASONE. [Concomitant]
     Active Substance: BETAMETHASONE
     Indication: PLACENTAL INSUFFICIENCY
  3. ACETYLSALICYLIC ACID [Suspect]
     Active Substance: ASPIRIN
     Indication: PRE-ECLAMPSIA
  4. ACETAMINOPHEN. [Concomitant]
     Active Substance: ACETAMINOPHEN
     Indication: PLACENTAL INSUFFICIENCY

REACTIONS (5)
  - Caesarean section [None]
  - Premature delivery [None]
  - Product use in unapproved indication [None]
  - Exposure during pregnancy [None]
  - Off label use [None]
